FAERS Safety Report 17875656 (Version 1)
Quarter: 2020Q2

REPORT INFORMATION
  Report Type: Spontaneous
  Country: FR (occurrence: FR)
  Receive Date: 20200609
  Receipt Date: 20200609
  Transmission Date: 20200714
  Serious: Yes (Other)
  Sender: FDA-Public Use
  Company Number: FR-MYLANLABS-2020M1054533

PATIENT
  Age: 7 Month
  Sex: Male
  Weight: 10.2 kg

DRUGS (1)
  1. ACICLOVIR MYLAN 250 MG, POWDER FOR SOLUTION FOR I.V. INJECTION [Suspect]
     Active Substance: ACYCLOVIR
     Indication: HERPES SIMPLEX
     Dosage: 3 DOSAGE FORM, QD
     Route: 041
     Dates: start: 20200512, end: 20200514

REACTIONS (3)
  - Injection site extravasation [Recovered/Resolved]
  - Injection site haematoma [Recovering/Resolving]
  - Injection site oedema [Recovered/Resolved]

NARRATIVE: CASE EVENT DATE: 20200514
